FAERS Safety Report 6949165-8 (Version None)
Quarter: 2010Q3

REPORT INFORMATION
  Report Type: 
  Country: None (occurrence: None)
  Receive Date: 20100828
  Receipt Date: 20091207
  Transmission Date: 20110219
  Serious: No
  Sender: FDA-Public Use
  Company Number: US-ABBOTT-09P-163-0613414-00

PATIENT
  Sex: Male
  Weight: 99.88 kg

DRUGS (1)
  1. NIASPAN [Suspect]
     Indication: MYOCARDIAL INFARCTION
     Route: 048
     Dates: start: 20090801, end: 20091001

REACTIONS (2)
  - FLUSHING [None]
  - SKIN BURNING SENSATION [None]
